FAERS Safety Report 5472416-6 (Version None)
Quarter: 2007Q3

REPORT INFORMATION
  Report Type: 
  Country: None (occurrence: None)
  Receive Date: 20070927
  Receipt Date: 20070912
  Transmission Date: 20080115
  Serious: Yes (Hospitalization)
  Sender: FDA-Public Use
  Company Number: 161492ISR

PATIENT
  Age: 69 Year
  Sex: Male

DRUGS (14)
  1. CISPLATIN [Suspect]
     Dosage: 80 MG ON DAY 1 OF 21-DAY CYCLE) (80 MG, CYCLICAL) INTRAVENOUS (NOT OTHERWISE SPECIFIED)
     Route: 042
     Dates: start: 20070807, end: 20070807
  2. IRINOTECAN HCL [Suspect]
     Dosage: 80 MG ON DAY 1 AND 8 OF 21-DAY CYCLE (80 MG, CYCLICAL) INTRAVENOUS (NOT OTHERWISE SPECIFIED)
     Route: 042
     Dates: start: 20070807, end: 20070807
  3. FAMCICLOVIR [Suspect]
     Dosage: ORAL
     Route: 048
     Dates: start: 20070818, end: 20070821
  4. ESOMEPRAZOLE MAGNESIUM [Concomitant]
  5. FUROSEMIDE [Concomitant]
  6. FLAVOXATE HCL [Concomitant]
  7. ALL OTHER THERAPEUTIC PRODUCTS [Concomitant]
  8. SERETIDE [Concomitant]
  9. HALOPERIDOL [Concomitant]
  10. MEGESTROL ACETATE [Concomitant]
  11. FLUCONAZOLE [Concomitant]
  12. PETHIDINE [Concomitant]
  13. PREDNISONE [Concomitant]
  14. NADROPARIN CALCIUM [Concomitant]

REACTIONS (2)
  - C-REACTIVE PROTEIN INCREASED [None]
  - PYREXIA [None]
